FAERS Safety Report 7039910-8 (Version None)
Quarter: 2010Q4

REPORT INFORMATION
  Report Type: 
  Country: None (occurrence: None)
  Receive Date: 20101012
  Receipt Date: 20101006
  Transmission Date: 20110411
  Serious: Yes (Other)
  Sender: FDA-Public Use
  Company Number: US-PFIZER INC-2010106694

PATIENT
  Sex: Male
  Weight: 107 kg

DRUGS (8)
  1. LIPITOR [Suspect]
     Indication: BLOOD CHOLESTEROL INCREASED
     Dosage: 40 MG, 1X/DAY
     Route: 048
  2. LOTREL [Concomitant]
     Indication: HYPERTENSION
     Dosage: 10/40 MG, UNK
  3. TEGRETOL [Concomitant]
     Dosage: 200 MG, UNK
  4. FENOFIBRIC ACID [Concomitant]
     Dosage: 135 MG, UNK
  5. NEXIUM [Concomitant]
     Dosage: 40 MG, UNK
  6. LOPRESSOR [Concomitant]
     Dosage: 75 MG, UNK
  7. PEPCID [Concomitant]
     Dosage: 20 MG, UNK
  8. ACETYLSALICYLIC ACID [Concomitant]
     Dosage: 325 MG, UNK

REACTIONS (2)
  - BLOOD CHOLESTEROL INCREASED [None]
  - BLOOD TRIGLYCERIDES INCREASED [None]
